FAERS Safety Report 4988587-1 (Version None)
Quarter: 2006Q2

REPORT INFORMATION
  Report Type: 
  Country: None (occurrence: None)
  Receive Date: 20060426
  Receipt Date: 20060410
  Transmission Date: 20061013
  Serious: Yes (Life-Threatening, Hospitalization, Disabling)
  Sender: FDA-Public Use
  Company Number: JP200604001568

PATIENT
  Age: 74 Year
  Sex: Female

DRUGS (2)
  1. EVISTA [Suspect]
     Indication: OSTEOPOROSIS POSTMENOPAUSAL
     Dosage: 60 MG, DAILY (1/D), ORAL
     Route: 048
     Dates: start: 20060131, end: 20060217
  2. MIYA-BM /JPN/ (CLOSTRIDIUM BUTYRICUM) [Concomitant]

REACTIONS (4)
  - CEREBRAL ARTERY STENOSIS [None]
  - MONOPLEGIA [None]
  - SENSATION OF HEAVINESS [None]
  - THROMBOTIC STROKE [None]
